FAERS Safety Report 7865199-3 (Version None)
Quarter: 2011Q4

REPORT INFORMATION
  Report Type: 
  Country: None (occurrence: None)
  Receive Date: 20111028
  Receipt Date: 20101029
  Transmission Date: 20120403
  Serious: No
  Sender: FDA-Public Use
  Company Number: US-GLAXOSMITHKLINE-A0889718A

PATIENT
  Age: 66 Year
  Sex: Female

DRUGS (11)
  1. GLIMEPIRIDE [Concomitant]
  2. ZOLPIDEM [Concomitant]
  3. ALBUTEROL [Concomitant]
  4. QUINAPRIL [Concomitant]
  5. AMLODIPINE BESYLATE [Concomitant]
  6. HYDROCODONE BITARTRATE AND ACETAMINOPHEN [Concomitant]
  7. PROAIR HFA [Concomitant]
  8. ADVAIR DISKUS 100/50 [Suspect]
     Indication: CHRONIC OBSTRUCTIVE PULMONARY DISEASE
     Dosage: 1PUFF TWICE PER DAY
     Route: 055
     Dates: start: 20100701
  9. LANTUS [Concomitant]
  10. LORAZEPAM [Concomitant]
  11. GABAPENTIN [Concomitant]

REACTIONS (1)
  - DYSPHONIA [None]
